FAERS Safety Report 24545915 (Version 1)
Quarter: 2024Q4

REPORT INFORMATION
  Report Type: Spontaneous
  Country: FR (occurrence: FR)
  Receive Date: 20241024
  Receipt Date: 20241024
  Transmission Date: 20250114
  Serious: Yes (Life-Threatening, Other)
  Sender: MERCK
  Company Number: None

PATIENT
  Age: 54 Year
  Sex: Male
  Weight: 70 kg

DRUGS (11)
  1. PEMBROLIZUMAB [Suspect]
     Active Substance: PEMBROLIZUMAB
     Indication: Lung adenocarcinoma
     Route: 042
     Dates: start: 20240911, end: 20240911
  2. CARBOPLATIN [Concomitant]
     Active Substance: CARBOPLATIN
     Indication: Lung adenocarcinoma
     Dosage: AUC4
     Route: 042
     Dates: start: 20240911, end: 20240911
  3. PACLITAXEL [Concomitant]
     Active Substance: PACLITAXEL
     Indication: Lung adenocarcinoma
     Dosage: 90 MILLIGRAM/SQ. METER, ONCE
     Route: 042
     Dates: start: 20240911, end: 20240911
  4. CEFOTAXIME SODIUM [Concomitant]
     Active Substance: CEFOTAXIME SODIUM
     Dosage: 2G/8H
     Route: 042
     Dates: start: 20240911, end: 20240917
  5. AZITHROMYCIN [Concomitant]
     Active Substance: AZITHROMYCIN
     Route: 042
     Dates: start: 20240911, end: 20240917
  6. FOLIC ACID [Concomitant]
     Active Substance: FOLIC ACID
     Dosage: MORNING
  7. FENTANYL [Concomitant]
     Active Substance: FENTANYL
     Dosage: MORNING, STRENGTH: 12 MICROGRAMS/HOUR (2.1 MG/5.25 CM?)
  8. MORPHINE SULFATE [Concomitant]
     Active Substance: MORPHINE SULFATE
     Dosage: MORNING
  9. ENOXAPARIN SODIUM [Concomitant]
     Active Substance: ENOXAPARIN SODIUM
     Dosage: 8000 IU MORNING AND EVENING
     Route: 058
     Dates: start: 20240912, end: 20240917
  10. ERYTHROPOIETIN [Concomitant]
     Active Substance: ERYTHROPOIETIN
     Dosage: STRENGTH: 30000 IU/0.75 ML, FORMULATION: SOLUTION FOR INJECTION IN
  11. METHYLPREDNISOLONE [Concomitant]
     Active Substance: METHYLPREDNISOLONE
     Dates: start: 20240913

REACTIONS (1)
  - Cytokine release syndrome [Recovering/Resolving]

NARRATIVE: CASE EVENT DATE: 20240916
